FAERS Safety Report 5167591-7 (Version None)
Quarter: 2006Q4

REPORT INFORMATION
  Report Type: 
  Country: None (occurrence: None)
  Receive Date: 20060918
  Receipt Date: 20060718
  Transmission Date: 20070319
  Serious: Yes (Other)
  Sender: FDA-Public Use
  Company Number: US-JNJFOC-20060703812

PATIENT
  Age: 5 Year
  Sex: Female
  Weight: 31 kg

DRUGS (2)
  1. TOPAMAX [Suspect]
     Indication: DRUG USE FOR UNKNOWN INDICATION
  2. TRILEPTAL [Concomitant]

REACTIONS (3)
  - AGGRESSION [None]
  - CONVULSION [None]
  - PSYCHOMOTOR HYPERACTIVITY [None]
